FAERS Safety Report 5832587-6 (Version None)
Quarter: 2008Q3

REPORT INFORMATION
  Report Type: 
  Country: None (occurrence: None)
  Receive Date: 20080804
  Receipt Date: 20080722
  Transmission Date: 20090109
  Serious: Yes (Hospitalization)
  Sender: FDA-Public Use
  Company Number: PHHY2008AU15095

PATIENT
  Sex: Female

DRUGS (3)
  1. FAMVIR [Suspect]
     Indication: GENITAL HERPES
  2. TAMBOCOR [Concomitant]
     Dosage: DAILY
  3. MAGNESIUM SULFATE [Concomitant]

REACTIONS (1)
  - ATRIAL FIBRILLATION [None]
